FAERS Safety Report 23916026 (Version 1)
Quarter: 2024Q2

REPORT INFORMATION
  Report Type: Spontaneous
  Country: US (occurrence: US)
  Receive Date: 20240529
  Receipt Date: 20240529
  Transmission Date: 20240716
  Serious: No
  Sender: FDA-Public Use
  Company Number: US-SA-SAC20240524000158

PATIENT
  Sex: Male
  Weight: 93.44 kg

DRUGS (1)
  1. DUPIXENT [Suspect]
     Active Substance: DUPILUMAB
     Indication: Product used for unknown indication
     Dosage: 300 MG, EVERY 2 WEEKS
     Route: 058

REACTIONS (3)
  - Cheilitis [Unknown]
  - Rhinalgia [Unknown]
  - Product dose omission issue [Unknown]
